FAERS Safety Report 19110466 (Version 1)
Quarter: 2021Q2

REPORT INFORMATION
  Report Type: Spontaneous
  Country: US (occurrence: US)
  Receive Date: 20210409
  Receipt Date: 20210409
  Transmission Date: 20210717
  Serious: Yes (Other)
  Sender: FDA-Public Use
  Company Number: US-SA-2021SA114475

PATIENT
  Age: 54 Year
  Sex: Female

DRUGS (1)
  1. ZANTAC [Suspect]
     Active Substance: RANITIDINE HYDROCHLORIDE
     Indication: DYSPEPSIA
     Dosage: 150 MG
     Dates: start: 200801, end: 201701

REACTIONS (6)
  - Hepatic cancer stage IV [Unknown]
  - Nasopharyngeal cancer [Unknown]
  - Bone cancer [Unknown]
  - Lung carcinoma cell type unspecified stage IV [Unknown]
  - Lymphoma [Unknown]
  - Bone cancer [Unknown]

NARRATIVE: CASE EVENT DATE: 20100907
